FAERS Safety Report 4887941-6 (Version None)
Quarter: 2006Q1

REPORT INFORMATION
  Report Type: 
  Country: None (occurrence: None)
  Receive Date: 20060123
  Receipt Date: 20050228
  Transmission Date: 20060701
  Serious: Yes (Hospitalization)
  Sender: FDA-Public Use
  Company Number: US-MERCK-0503USA00252

PATIENT
  Age: 64 Year
  Sex: Female
  Weight: 159 kg

DRUGS (22)
  1. VIOXX [Suspect]
     Indication: ARTHRITIS
     Route: 048
     Dates: start: 20010101, end: 20010701
  2. AFEDITAB CR [Concomitant]
     Route: 065
  3. CAPTOPRIL [Concomitant]
     Route: 065
  4. DIGITEK [Concomitant]
     Route: 065
  5. DOXYCYCLINE [Concomitant]
     Route: 065
  6. FUROSEMIDE [Concomitant]
     Route: 065
  7. FERROUS SULFATE [Concomitant]
     Route: 065
  8. HUMULIN [Concomitant]
     Route: 065
  9. IMDUR [Concomitant]
     Route: 065
  10. LEVAQUIN [Concomitant]
     Route: 065
  11. LEVOTHYROXINE SODIUM [Concomitant]
     Route: 065
  12. LOTENSIN [Concomitant]
     Route: 065
  13. METOPROLOL [Concomitant]
     Route: 065
  14. NIFEDIPINE [Concomitant]
     Route: 065
  15. NITROQUICK [Concomitant]
     Route: 065
  16. PACERONE [Concomitant]
     Route: 065
  17. PLAVIX [Concomitant]
     Route: 065
  18. POTASSIUM CHLORIDE [Concomitant]
     Route: 065
  19. PRAZOSIN HYDROCHLORIDE [Concomitant]
     Route: 065
  20. PREVACID [Concomitant]
     Route: 065
  21. SPIRONOLACTONE [Concomitant]
     Route: 065
  22. REDISOL [Concomitant]
     Route: 065

REACTIONS (32)
  - ACUTE MYOCARDIAL INFARCTION [None]
  - ANAEMIA [None]
  - ANGINA UNSTABLE [None]
  - AORTIC VALVE INCOMPETENCE [None]
  - ARTERIOSCLEROSIS CORONARY ARTERY [None]
  - AZOTAEMIA [None]
  - BACK PAIN [None]
  - CARDIAC FAILURE CONGESTIVE [None]
  - CARDIOMYOPATHY [None]
  - COLONIC POLYP [None]
  - CORONARY ARTERY OCCLUSION [None]
  - DEHYDRATION [None]
  - DIABETIC NEUROPATHY [None]
  - ESSENTIAL HYPERTENSION [None]
  - GASTRITIS [None]
  - HAEMORRHOIDS [None]
  - HYPERKALAEMIA [None]
  - INTERVERTEBRAL DISC PROTRUSION [None]
  - INTESTINAL POLYP [None]
  - IRON DEFICIENCY ANAEMIA [None]
  - LUMBAR RADICULOPATHY [None]
  - NEPHROPATHY [None]
  - PLEURAL EFFUSION [None]
  - PNEUMONIA [None]
  - RENAL FAILURE ACUTE [None]
  - RENAL FAILURE CHRONIC [None]
  - SINUS BRADYCARDIA [None]
  - SPINAL COLUMN STENOSIS [None]
  - THERAPEUTIC AGENT TOXICITY [None]
  - TRANSIENT ISCHAEMIC ATTACK [None]
  - VENTRICULAR TACHYCARDIA [None]
  - VITAMIN B COMPLEX DEFICIENCY [None]
